FAERS Safety Report 7469582-X (Version None)
Quarter: 2011Q2

REPORT INFORMATION
  Report Type: 
  Country: None (occurrence: None)
  Receive Date: 20110510
  Receipt Date: 20090401
  Transmission Date: 20111010
  Serious: Yes (Death, Other)
  Sender: FDA-Public Use
  Company Number: US-BAYER-200922707NA

PATIENT
  Age: 77 Year
  Sex: Male
  Weight: 61.224 kg

DRUGS (31)
  1. AGGRASTAT [Concomitant]
     Dosage: 0.9MCG/KG/MINUTE
     Route: 042
     Dates: start: 20020914
  2. MANNITOL [Concomitant]
     Indication: PRODUCT USED FOR UNKNOWN INDICATION
  3. FRESH FROZEN PLASMA [Concomitant]
     Indication: PRODUCT USED FOR UNKNOWN INDICATION
     Dosage: 2 U, UNK
  4. METOPROLOL SUCCINATE [Concomitant]
     Dosage: 12.5 MG, BID
     Route: 048
  5. METOPROLOL SUCCINATE [Concomitant]
     Dosage: 25 MG, QD
  6. SODIUM BICARBONATE [Concomitant]
     Indication: PRODUCT USED FOR UNKNOWN INDICATION
     Dosage: 100 MEQ, UNK
  7. TRASYLOL [Suspect]
     Dosage: 200 ML VIA CARDIOPULMONARY BYPASS, UNK
     Route: 042
     Dates: start: 20020916, end: 20020916
  8. TRASYLOL [Suspect]
     Dosage: 200 ML (LOADING DOSE), UNK
     Route: 042
     Dates: start: 20020916, end: 20020916
  9. AMIODARONE [Concomitant]
     Dosage: 200 MG, QD
     Route: 048
  10. AGGRASTAT [Concomitant]
     Dosage: 0.1MCG/KG/MIN
     Route: 042
     Dates: start: 20020914
  11. MUCOMYST [Concomitant]
     Dosage: 600
     Route: 048
  12. OXYGEN [Concomitant]
     Indication: PRODUCT USED FOR UNKNOWN INDICATION
     Dosage: UNK
  13. LACTATED RINGER'S [Concomitant]
     Indication: PRODUCT USED FOR UNKNOWN INDICATION
  14. LIDOCAINE [Concomitant]
     Indication: PRODUCT USED FOR UNKNOWN INDICATION
     Dosage: 200 MG, UNK
  15. TRASYLOL [Suspect]
     Dosage: 50 ML Q1HR
     Route: 042
     Dates: start: 20020916, end: 20020916
  16. LISINOPRIL [Concomitant]
     Dosage: 5, DAILY
     Route: 048
  17. VERSED [Concomitant]
     Indication: PRODUCT USED FOR UNKNOWN INDICATION
     Dosage: UNK
  18. EPINEPHRINE [Concomitant]
     Indication: PRODUCT USED FOR UNKNOWN INDICATION
     Dosage: UNK
  19. HEPARIN [Concomitant]
     Indication: PRODUCT USED FOR UNKNOWN INDICATION
  20. SIMVASTATIN [Concomitant]
     Dosage: 20 MG, UNK
     Route: 048
  21. DOPAMINE HCL [Concomitant]
     Indication: PRODUCT USED FOR UNKNOWN INDICATION
  22. MAGNESIUM [MAGNESIUM] [Concomitant]
     Indication: PRODUCT USED FOR UNKNOWN INDICATION
     Dosage: 1.5 G, UNK
  23. FENTANYL [Concomitant]
     Indication: PRODUCT USED FOR UNKNOWN INDICATION
     Dosage: UNK
  24. PROPOFOL [Concomitant]
     Indication: PRODUCT USED FOR UNKNOWN INDICATION
  25. TRASYLOL [Suspect]
     Indication: CORONARY ARTERY BYPASS
     Dosage: 1 ML (INITIAL DOSE), UNK
     Route: 042
     Dates: start: 20020916, end: 20020916
  26. ZESTRIL [Concomitant]
     Dosage: 5 MG, BID
     Route: 048
  27. ACETYLSALICYLIC ACID SRT [Concomitant]
     Dosage: 325, DAILY
     Route: 048
  28. LANSOPRAZOLE [Concomitant]
     Dosage: 30 MG, QD
     Route: 048
  29. TIROFIBAN [Concomitant]
     Dosage: 12.500 MG, UNK
     Route: 042
     Dates: start: 20020913
  30. MORPHINE SULFATE [Concomitant]
     Dosage: 1-2MG, PRN
     Route: 042
     Dates: start: 20020913
  31. RED BLOOD CELLS, CONCENTRATED [Concomitant]
     Indication: PRODUCT USED FOR UNKNOWN INDICATION
     Dosage: 2 U, UNK
     Route: 042

REACTIONS (10)
  - RENAL FAILURE [None]
  - DEATH [None]
  - ANXIETY [None]
  - PAIN [None]
  - RENAL INJURY [None]
  - FEAR [None]
  - STRESS [None]
  - INJURY [None]
  - RENAL IMPAIRMENT [None]
  - EMOTIONAL DISTRESS [None]
